FAERS Safety Report 18941788 (Version 1)
Quarter: 2021Q1

REPORT INFORMATION
  Report Type: Spontaneous
  Country: US (occurrence: US)
  Receive Date: 20210225
  Receipt Date: 20210225
  Transmission Date: 20210420
  Serious: Yes (Other)
  Sender: FDA-Public Use
  Company Number: US-AMGEN-USASP2021026699

PATIENT

DRUGS (1)
  1. INFLIXIMAB?AXXQ. [Suspect]
     Active Substance: INFLIXIMAB-AXXQ
     Indication: TUBULOINTERSTITIAL NEPHRITIS
     Dosage: UNK
     Route: 065
     Dates: start: 202007

REACTIONS (3)
  - Hepatitis [Unknown]
  - Colitis [Unknown]
  - Off label use [Unknown]

NARRATIVE: CASE EVENT DATE: 2020
